FAERS Safety Report 5898860-0 (Version None)
Quarter: 2008Q3

REPORT INFORMATION
  Report Type: 
  Country: None (occurrence: None)
  Receive Date: 20080925
  Receipt Date: 20080922
  Transmission Date: 20090109
  Serious: Yes (Hospitalization)
  Sender: FDA-Public Use
  Company Number: US-BRISTOL-MYERS SQUIBB COMPANY-14343693

PATIENT
  Age: 63 Year
  Sex: Male
  Weight: 94 kg

DRUGS (9)
  1. PRAVACHOL [Suspect]
  2. ACCUPRIL [Suspect]
  3. OMACOR [Suspect]
  4. COREG [Suspect]
     Indication: RENAL CELL CARCINOMA
  5. HUMALOG [Suspect]
     Dosage: 25MG IN AM:25MG IN PM
  6. HYDRALAZINE HCL [Suspect]
  7. LEXAPRO [Suspect]
  8. NOVOLOG [Suspect]
     Dosage: 1 DF = 100 UNITS/ML
     Route: 058
  9. ACETYLSALICYLIC ACID SRT [Concomitant]

REACTIONS (4)
  - ARRHYTHMIA [None]
  - BRADYCARDIA [None]
  - HYPOGLYCAEMIA [None]
  - SYNCOPE [None]
